FAERS Safety Report 11604203 (Version 1)
Quarter: 2015Q3

REPORT INFORMATION
  Report Type: Spontaneous
  Country: US (occurrence: US)
  Receive Date: 20150916
  Receipt Date: 20150916
  Transmission Date: 20151125
  Serious: No
  Sender: FDA-Public Use
  Company Number: US-ELI_LILLY_AND_COMPANY-US201405004481

PATIENT
  Sex: Female

DRUGS (1)
  1. HUMALOG [Suspect]
     Active Substance: INSULIN LISPRO
     Indication: TYPE 2 DIABETES MELLITUS
     Dosage: 9 U, QD
     Route: 065

REACTIONS (5)
  - Blood glucose abnormal [Unknown]
  - Decreased appetite [Unknown]
  - Stress [Unknown]
  - Hypertension [Unknown]
  - Blood cholesterol [Unknown]

NARRATIVE: CASE EVENT DATE: 2013
